FAERS Safety Report 4648129-7 (Version None)
Quarter: 2005Q2

REPORT INFORMATION
  Report Type: 
  Country: None (occurrence: None)
  Receive Date: 20050428
  Receipt Date: 20050328
  Transmission Date: 20051028
  Serious: Yes (Life-Threatening, Disabling)
  Sender: FDA-Public Use
  Company Number: US-MERCK-0503USA04926

PATIENT
  Age: 80 Year
  Sex: Female
  Weight: 65 kg

DRUGS (6)
  1. VYTORIN [Suspect]
     Indication: BLOOD CHOLESTEROL INCREASED
     Route: 048
     Dates: start: 20050317, end: 20050321
  2. NEXIUM [Concomitant]
     Route: 065
  3. AMARYL [Concomitant]
     Indication: DIABETES MELLITUS
     Route: 048
  4. AVANDIA [Concomitant]
     Indication: DIABETES MELLITUS
     Route: 048
  5. HYDROCHLOROTHIAZIDE [Concomitant]
     Indication: HYPERTENSION
     Route: 048
  6. QUININE SULFATE [Concomitant]
     Indication: MUSCLE SPASMS
     Route: 048

REACTIONS (4)
  - DRUG DISPENSING ERROR [None]
  - DYSPEPSIA [None]
  - FEELING ABNORMAL [None]
  - VOMITING [None]
